FAERS Safety Report 15426761 (Version 13)
Quarter: 2020Q3

REPORT INFORMATION
  Report Type: Report from Study
  Country: CA (occurrence: CA)
  Receive Date: 20180925
  Receipt Date: 20200918
  Transmission Date: 20201102
  Serious: Yes (Hospitalization, Other)
  Sender: FDA-Public Use
  Company Number: CA-SA-2016SA152449

PATIENT

DRUGS (14)
  1. ALEMTUZUMAB [Suspect]
     Active Substance: ALEMTUZUMAB
     Indication: RELAPSING-REMITTING MULTIPLE SCLEROSIS
     Dosage: 12 MG,QD
     Route: 041
     Dates: start: 20160815, end: 20160817
  2. ACICLOVIR [Suspect]
     Active Substance: ACYCLOVIR
     Dosage: 200 MG,BID
     Route: 048
     Dates: start: 20160815
  3. METHYLPREDNISOLONE SODIUM SUCCINATE. [Suspect]
     Active Substance: METHYLPREDNISOLONE SODIUM SUCCINATE
     Dosage: 1 G,UNK
     Route: 042
     Dates: start: 20160815, end: 20160817
  4. DITROPAN [Concomitant]
     Active Substance: OXYBUTYNIN CHLORIDE
     Dosage: 2.5 MG QAM, 1 TAB HS
     Route: 048
  5. ZANTAC [Concomitant]
     Active Substance: RANITIDINE HYDROCHLORIDE
     Indication: PREMEDICATION
     Dosage: 150 MG,UNK
     Route: 048
     Dates: start: 20160815, end: 20160817
  6. MACROBID [Concomitant]
     Active Substance: NITROFURANTOIN\NITROFURANTOIN MONOHYDRATE
     Indication: PROPHYLAXIS
     Dosage: UNK UNK,UNK
     Route: 048
  7. ACETAMINOPHEN. [Concomitant]
     Active Substance: ACETAMINOPHEN
     Indication: PREMEDICATION
     Dosage: 650 MG,UNK
     Route: 048
     Dates: start: 20160815, end: 20160817
  8. RIVOTRIL [Concomitant]
     Active Substance: CLONAZEPAM
     Dosage: .25 MG,TID
     Route: 048
  9. RESTORIL [Concomitant]
     Active Substance: TEMAZEPAM
     Dosage: 2 DF,HS
     Route: 048
  10. GRAVOL [Concomitant]
     Active Substance: DIMENHYDRINATE
     Indication: PREMEDICATION
     Dosage: UNK UNK,PRN
     Route: 065
     Dates: start: 20160815
  11. HYDROMORPHONE [Concomitant]
     Active Substance: HYDROMORPHONE
     Dosage: UNK UNK, UNK
     Route: 065
     Dates: start: 201908
  12. OXYBUTYNIN. [Concomitant]
     Active Substance: OXYBUTYNIN CHLORIDE
     Dosage: 2.5 MG,QD
     Route: 048
  13. METHYLPREDNISOLONE. [Concomitant]
     Active Substance: METHYLPREDNISOLONE
     Indication: PREMEDICATION
     Dosage: 1 G,UNK
     Route: 042
     Dates: start: 20160815, end: 20160817
  14. BACLOFEN. [Concomitant]
     Active Substance: BACLOFEN
     Dosage: 4 DF,QD
     Route: 048

REACTIONS (78)
  - Glomerular filtration rate decreased [Not Recovered/Not Resolved]
  - Neutrophil percentage increased [Recovered/Resolved]
  - Myelocyte percentage increased [Not Recovered/Not Resolved]
  - Urine oxalate increased [Not Recovered/Not Resolved]
  - Lymphocyte count decreased [Recovered/Resolved]
  - Vulvovaginal mycotic infection [Not Recovered/Not Resolved]
  - Ear pain [Recovered/Resolved]
  - Specific gravity urine decreased [Recovered/Resolved]
  - Fatigue [Recovering/Resolving]
  - Condition aggravated [Not Recovered/Not Resolved]
  - Condition aggravated [Not Recovered/Not Resolved]
  - Feeding disorder [Unknown]
  - Myelocyte count increased [Not Recovered/Not Resolved]
  - Haemoglobin decreased [Recovered/Resolved]
  - Red blood cells urine positive [Recovered/Resolved]
  - Nausea [Recovered/Resolved]
  - Malaise [Unknown]
  - Headache [Recovered/Resolved]
  - Urinary tract infection bacterial [Not Recovered/Not Resolved]
  - Culture urine positive [Not Recovered/Not Resolved]
  - Arthralgia [Recovering/Resolving]
  - Multiple sclerosis [Not Recovered/Not Resolved]
  - Dizziness [Recovered/Resolved]
  - Monocyte percentage increased [Recovered/Resolved]
  - Throat irritation [Recovered/Resolved]
  - Urine leukocyte esterase positive [Recovered/Resolved]
  - Klebsiella test positive [Not Recovered/Not Resolved]
  - Bacterial test positive [Recovered/Resolved]
  - Burning sensation [Recovering/Resolving]
  - Dizziness [Not Recovered/Not Resolved]
  - Rash [Recovered/Resolved]
  - Trismus [Recovered/Resolved]
  - White blood cells urine positive [Recovered/Resolved]
  - Blood urine present [Recovered/Resolved]
  - Visual impairment [Not Recovered/Not Resolved]
  - Nystagmus [Not Recovered/Not Resolved]
  - Feeling abnormal [Not Recovered/Not Resolved]
  - Red cell distribution width increased [Not Recovered/Not Resolved]
  - Mean cell haemoglobin concentration decreased [Unknown]
  - Chills [Not Recovered/Not Resolved]
  - Enterobacter test positive [Not Recovered/Not Resolved]
  - Nephritis [Recovering/Resolving]
  - Burning sensation [Not Recovered/Not Resolved]
  - Pain in jaw [Unknown]
  - Band neutrophil count increased [Recovered/Resolved]
  - Crystal urine present [Unknown]
  - Haematocrit decreased [Recovered/Resolved]
  - Tendon disorder [Recovering/Resolving]
  - Bilirubin urine present [Recovered/Resolved]
  - Dyspnoea [Recovered/Resolved]
  - Pain in extremity [Recovering/Resolving]
  - Dysstasia [Not Recovered/Not Resolved]
  - Pyrexia [Recovered/Resolved]
  - Insomnia [Recovered/Resolved]
  - Urine analysis abnormal [Not Recovered/Not Resolved]
  - White blood cell count decreased [Not Recovered/Not Resolved]
  - Lymphocyte percentage decreased [Not Recovered/Not Resolved]
  - Retinal depigmentation [Unknown]
  - Escherichia test positive [Unknown]
  - Multiple sclerosis relapse [Not Recovered/Not Resolved]
  - Gait disturbance [Not Recovered/Not Resolved]
  - Hypoaesthesia [Not Recovered/Not Resolved]
  - Condition aggravated [Not Recovered/Not Resolved]
  - Pruritus [Recovered/Resolved]
  - Band neutrophil percentage increased [Not Recovered/Not Resolved]
  - Urinary sediment present [Unknown]
  - Red blood cell count decreased [Recovered/Resolved]
  - Neutrophil count increased [Recovered/Resolved]
  - Eye pain [Not Recovered/Not Resolved]
  - Dry eye [Not Recovered/Not Resolved]
  - Weight decreased [Not Recovered/Not Resolved]
  - Disseminated varicella zoster virus infection [Recovered/Resolved]
  - Muscular weakness [Not Recovered/Not Resolved]
  - Nitrite urine present [Recovered/Resolved]
  - Blood thyroid stimulating hormone decreased [Recovered/Resolved]
  - Chest discomfort [Not Recovered/Not Resolved]
  - Lymphopenia [Recovered/Resolved]
  - Vaginal infection [Recovered/Resolved]

NARRATIVE: CASE EVENT DATE: 2016
